FAERS Safety Report 15391251 (Version 1)
Quarter: 2018Q3

REPORT INFORMATION
  Report Type: Spontaneous
  Country: US (occurrence: US)
  Receive Date: 20180910
  Receipt Date: 20180910
  Transmission Date: 20181010
  Serious: Yes (Other)
  Sender: FDA-Public Use
  Company Number: None

PATIENT
  Age: 45 Year
  Sex: Male

DRUGS (1)
  1. SOVEREING SILVER (COLLOIDAL SILVER) [Suspect]
     Active Substance: SILVER

REACTIONS (5)
  - Argyria [None]
  - Headache [None]
  - Constipation [None]
  - Somnolence [None]
  - Product quality issue [None]
